FAERS Safety Report 19692393 (Version 1)
Quarter: 2021Q3

REPORT INFORMATION
  Report Type: Report from Study
  Country: IE (occurrence: IE)
  Receive Date: 20210812
  Receipt Date: 20210812
  Transmission Date: 20211014
  Serious: Yes (Hospitalization)
  Sender: FDA-Public Use
  Company Number: IE-SA-2021SA202118

PATIENT
  Age: 59 Year
  Sex: Female

DRUGS (6)
  1. INNOHEP [Concomitant]
     Active Substance: TINZAPARIN SODIUM
     Dosage: 20000 MG
     Route: 050
  2. TERIFLUNOMIDE. [Suspect]
     Active Substance: TERIFLUNOMIDE
     Indication: RELAPSING-REMITTING MULTIPLE SCLEROSIS
     Dosage: UNK UNK, QD
     Route: 048
     Dates: start: 20210527
  3. ERDAFITINIB. [Concomitant]
     Active Substance: ERDAFITINIB
     Dosage: 4 MG
     Route: 050
  4. AMLODIPINE [Concomitant]
     Active Substance: AMLODIPINE BESYLATE
     Dosage: 5 MG
     Route: 050
  5. LIPITOR [Concomitant]
     Active Substance: ATORVASTATIN CALCIUM
     Dosage: 30 MG
     Route: 050
  6. TERIFLUNOMIDE. [Suspect]
     Active Substance: TERIFLUNOMIDE
     Route: 048

REACTIONS (11)
  - Peripheral swelling [Unknown]
  - Diarrhoea [Unknown]
  - Decreased appetite [Unknown]
  - Condition aggravated [Unknown]
  - Onychoclasis [Unknown]
  - Nail discolouration [Unknown]
  - Pain in extremity [Unknown]
  - Liver disorder [Unknown]
  - Erythema [Unknown]
  - Skin warm [Unknown]
  - Alopecia [Unknown]

NARRATIVE: CASE EVENT DATE: 2021
